FAERS Safety Report 4438208-1 (Version None)
Quarter: 2004Q3

REPORT INFORMATION
  Report Type: 
  Country: None (occurrence: None)
  Receive Date: 20040831
  Receipt Date: 20040616
  Transmission Date: 20050211
  Serious: No
  Sender: FDA-Public Use
  Company Number: US-GLAXOSMITHKLINE-A0514878A

PATIENT
  Age: 39 Year
  Sex: Female

DRUGS (3)
  1. WELLBUTRIN XL [Suspect]
     Indication: ILL-DEFINED DISORDER
     Dosage: 150MG PER DAY
     Route: 048
     Dates: start: 20040401
  2. ESTROGEN [Concomitant]
  3. ALEVE COLD AND SINUS [Concomitant]

REACTIONS (10)
  - ANXIETY [None]
  - BLOOD PRESSURE DECREASED [None]
  - DISORIENTATION [None]
  - DIZZINESS [None]
  - HEART RATE INCREASED [None]
  - MIGRAINE [None]
  - NAUSEA [None]
  - NERVOUSNESS [None]
  - TINNITUS [None]
  - TREMOR [None]
